FAERS Safety Report 15474821 (Version 1)
Quarter: 2018Q4

REPORT INFORMATION
  Report Type: Spontaneous
  Country: US (occurrence: US)
  Receive Date: 20181008
  Receipt Date: 20181008
  Transmission Date: 20190205
  Serious: No
  Sender: FDA-Public Use
  Company Number: US-BAYER-2018-185812

PATIENT
  Age: 37 Year
  Sex: Female

DRUGS (2)
  1. GADAVIST [Suspect]
     Active Substance: GADOBUTROL
     Indication: NUCLEAR MAGNETIC RESONANCE IMAGING ABDOMINAL
     Dosage: 7 ML, ONCE
     Dates: start: 20181001, end: 20181001
  2. GADAVIST [Suspect]
     Active Substance: GADOBUTROL
     Indication: LIVER DISORDER

REACTIONS (7)
  - Pruritus [Recovered/Resolved]
  - Skin warm [Recovered/Resolved]
  - Headache [Recovered/Resolved]
  - Scratch [Recovered/Resolved]
  - Feeling hot [Recovered/Resolved]
  - Urticaria [Recovered/Resolved]
  - Throat irritation [Recovered/Resolved]

NARRATIVE: CASE EVENT DATE: 20181001
